FAERS Safety Report 4677105-3 (Version None)
Quarter: 2005Q2

REPORT INFORMATION
  Report Type: 
  Country: None (occurrence: None)
  Receive Date: 20050525
  Receipt Date: 20050525
  Transmission Date: 20051028
  Serious: Yes (Hospitalization)
  Sender: FDA-Public Use
  Company Number: None

PATIENT
  Age: 65 Year
  Sex: Male
  Weight: 90.7194 kg

DRUGS (2)
  1. NIACIN [Suspect]
     Indication: HYPERLIPIDAEMIA
     Dosage: 2000 MG   DAILY   ORAL
     Route: 048
     Dates: start: 20031018, end: 20050425
  2. SIMVASTATIN [Suspect]
     Indication: HYPERLIPIDAEMIA
     Dosage: 20 MG   DAILY   ORAL
     Route: 048
     Dates: start: 20050211, end: 20050425

REACTIONS (1)
  - PAIN IN EXTREMITY [None]
